FAERS Safety Report 17732515 (Version 4)
Quarter: 2020Q2

REPORT INFORMATION
  Report Type: Spontaneous
  Country: US (occurrence: US)
  Receive Date: 20200501
  Receipt Date: 20200512
  Transmission Date: 20200714
  Serious: Yes (Hospitalization)
  Sender: FDA-Public Use
  Company Number: US-CELGENEUS-USA-20200409695

PATIENT
  Age: 81 Year
  Sex: Female
  Weight: 66.6 kg

DRUGS (3)
  1. CARBOPLATIN. [Suspect]
     Active Substance: CARBOPLATIN
     Indication: LARYNGEAL CANCER
     Route: 041
     Dates: start: 20200313, end: 20200421
  2. ABRAXANE [Suspect]
     Active Substance: PACLITAXEL
     Indication: LARYNGEAL CANCER
     Dosage: 171MG/AUC2
     Route: 042
     Dates: start: 20200313, end: 20200421
  3. DURVALUMAB. [Suspect]
     Active Substance: DURVALUMAB
     Indication: LARYNGEAL CANCER
     Dosage: 750 MILLIGRAM
     Route: 042
     Dates: start: 20200313, end: 20200414

REACTIONS (2)
  - Fall [Recovered/Resolved]
  - Pyrexia [Recovered/Resolved]

NARRATIVE: CASE EVENT DATE: 20200422
